FAERS Safety Report 11460096 (Version 3)
Quarter: 2017Q1

REPORT INFORMATION
  Report Type: Report from Study
  Country: JP (occurrence: JP)
  Receive Date: 20150904
  Receipt Date: 20170116
  Transmission Date: 20170428
  Serious: Yes (Death, Hospitalization)
  Sender: FDA-Public Use
  Company Number: JP-EISAI MEDICAL RESEARCH-EC-2015-010221

PATIENT
  Age: 71 Year
  Sex: Female
  Weight: 50 kg

DRUGS (22)
  1. HALAVEN [Suspect]
     Active Substance: ERIBULIN MESYLATE
     Route: 041
     Dates: start: 20150316, end: 20150622
  2. NOVAMIN [Concomitant]
     Active Substance: PROCHLORPERAZINE MALEATE
  3. KERATINAMIN KOWA [Concomitant]
  4. RANITIDINE. [Concomitant]
     Active Substance: RANITIDINE
  5. NERISONA [Concomitant]
     Active Substance: DIFLUCORTOLONE VALERATE
  6. ZOFRAN [Concomitant]
     Active Substance: ONDANSETRON HYDROCHLORIDE
  7. RANITIDINE. [Concomitant]
     Active Substance: RANITIDINE
  8. GRANISETRON [Concomitant]
     Active Substance: GRANISETRON
  9. HALAVEN [Suspect]
     Active Substance: ERIBULIN MESYLATE
     Indication: TUBULAR BREAST CARCINOMA
     Route: 041
     Dates: start: 20150223, end: 20150223
  10. HALAVEN [Suspect]
     Active Substance: ERIBULIN MESYLATE
     Route: 041
     Dates: start: 20150727, end: 20150727
  11. RANMARK [Concomitant]
     Active Substance: DENOSUMAB
  12. DENOTAS [Concomitant]
     Active Substance: CALCIUM CARBONATE\CHOLECALCIFEROL\MAGNESIUM CARBONATE
  13. MAGLAX [Concomitant]
     Active Substance: MAGNESIUM OXIDE
  14. MAGNESIUM OXIDE. [Concomitant]
     Active Substance: MAGNESIUM OXIDE
  15. DECADRON [Concomitant]
     Active Substance: DEXAMETHASONE
  16. PREDONINE [Concomitant]
     Active Substance: PREDNISOLONE
  17. HALAVEN [Suspect]
     Active Substance: ERIBULIN MESYLATE
     Route: 041
     Dates: start: 20150824, end: 20150914
  18. ATARAX-P [Concomitant]
     Active Substance: HYDROXYZINE HYDROCHLORIDE
  19. ALLELOCK [Concomitant]
     Active Substance: OLOPATADINE HYDROCHLORIDE
  20. PRIMPERAN [Concomitant]
     Active Substance: METOCLOPRAMIDE HYDROCHLORIDE
  21. DEXART [Concomitant]
     Active Substance: DEXAMETHASONE SODIUM PHOSPHATE
  22. OXYCONTIN [Concomitant]
     Active Substance: OXYCODONE HYDROCHLORIDE

REACTIONS (3)
  - Leukopenia [Recovered/Resolved]
  - Febrile neutropenia [Recovered/Resolved]
  - Malignant neoplasm progression [Fatal]

NARRATIVE: CASE EVENT DATE: 20150301
